FAERS Safety Report 9232946 (Version 1)
Quarter: 2013Q2

REPORT INFORMATION
  Report Type: Spontaneous
  Country: DE (occurrence: DE)
  Receive Date: 20130416
  Receipt Date: 20130416
  Transmission Date: 20140414
  Serious: Yes (Other)
  Sender: FDA-Public Use
  Company Number: DE-ELI_LILLY_AND_COMPANY-DE201303006049

PATIENT
  Sex: Female

DRUGS (10)
  1. CYMBALTA [Suspect]
     Indication: DEPRESSION
     Dosage: 60 MG, UNKNOWN
     Route: 048
     Dates: start: 20100327, end: 201301
  2. CYMBALTA [Suspect]
     Dosage: 1 DF, UNK
     Dates: start: 201301, end: 201302
  3. CYMBALTA [Suspect]
     Dosage: 1 DF, UNK
     Dates: start: 20130308
  4. ZYPREXA [Concomitant]
     Indication: HALLUCINATION
     Dosage: 2.5 MG, EACH EVENING
  5. CALCIUM + VITAMIN D [Concomitant]
  6. MOVICOL [Concomitant]
  7. ALENDRONIC ACID [Concomitant]
  8. RAMIPRIL [Concomitant]
  9. PANTAZOL [Concomitant]
  10. ZOLPIDEM [Concomitant]

REACTIONS (6)
  - Dementia [Unknown]
  - Tinnitus [Recovering/Resolving]
  - Sleep disorder [Not Recovered/Not Resolved]
  - Moaning [Not Recovered/Not Resolved]
  - Memory impairment [Not Recovered/Not Resolved]
  - Visual impairment [Not Recovered/Not Resolved]
